FAERS Safety Report 5512664-X (Version None)
Quarter: 2007Q4

REPORT INFORMATION
  Report Type: 
  Country: None (occurrence: None)
  Receive Date: 20071107
  Receipt Date: 20071022
  Transmission Date: 20080405
  Serious: Yes (Life-Threatening, Hospitalization, Other)
  Sender: FDA-Public Use
  Company Number: POMP-11177

PATIENT
  Age: 2 Year
  Sex: Female
  Weight: 6.29 kg

DRUGS (2)
  1. MYOZYME [Suspect]
     Indication: GLYCOGEN STORAGE DISEASE TYPE II
     Dosage: 20 MG/KG Q2WKS IV
     Route: 042
     Dates: start: 20060619, end: 20070809
  2. MILRINONE [Concomitant]

REACTIONS (24)
  - ACINETOBACTER INFECTION [None]
  - ALPHA HAEMOLYTIC STREPTOCOCCAL INFECTION [None]
  - BLOOD IMMUNOGLOBULIN G INCREASED [None]
  - BLOOD SODIUM DECREASED [None]
  - CARDIAC FAILURE [None]
  - CONDITION AGGRAVATED [None]
  - ELECTROLYTE IMBALANCE [None]
  - FLUID RETENTION [None]
  - GENE MUTATION IDENTIFICATION TEST POSITIVE [None]
  - HAEMOPHILUS INFECTION [None]
  - HEART RATE INCREASED [None]
  - INFUSION RELATED REACTION [None]
  - LABORATORY TEST INTERFERENCE [None]
  - MOTOR DYSFUNCTION [None]
  - MYOCARDIAL ISCHAEMIA [None]
  - NEISSERIA INFECTION [None]
  - NO THERAPEUTIC RESPONSE [None]
  - NODAL ARRHYTHMIA [None]
  - PNEUMONIA [None]
  - PSEUDOMONAS INFECTION [None]
  - RENAL IMPAIRMENT [None]
  - SPUTUM CULTURE POSITIVE [None]
  - STAPHYLOCOCCAL INFECTION [None]
  - VENTRICULAR EXTRASYSTOLES [None]
